FAERS Safety Report 7446599-2 (Version None)
Quarter: 2011Q2

REPORT INFORMATION
  Report Type: 
  Country: None (occurrence: None)
  Receive Date: 20110429
  Receipt Date: 20110420
  Transmission Date: 20111010
  Serious: Yes (Other)
  Sender: FDA-Public Use
  Company Number: PHHY2011FR33841

PATIENT
  Sex: Female

DRUGS (3)
  1. LAMOTRIGINE [Suspect]
     Indication: EPILEPSY
     Dosage: 100 MG, BID
     Route: 048
  2. LIORESAL [Concomitant]
     Dosage: 4 DF/DAY
  3. LAMOTRIGINE [Suspect]
     Dosage: 25 MG, BID
     Route: 048

REACTIONS (3)
  - DRY EYE [None]
  - SICCA SYNDROME [None]
  - OEDEMA MOUTH [None]
